FAERS Safety Report 8001435-0 (Version None)
Quarter: 2011Q4

REPORT INFORMATION
  Report Type: 
  Country: None (occurrence: None)
  Receive Date: 20111222
  Receipt Date: 20111216
  Transmission Date: 20120403
  Serious: Yes (Other)
  Sender: FDA-Public Use
  Company Number: CN-ROXANE LABORATORIES, INC.-2011-RO-01821RO

PATIENT
  Age: 12 Year
  Sex: Male

DRUGS (4)
  1. PREDNISONE [Suspect]
     Dosage: 60 MG
     Route: 048
  2. CEFTRIAXONE [Suspect]
     Indication: GASTROENTERITIS
     Dosage: 2 G
     Route: 042
  3. METRONIDAZOLE [Suspect]
     Indication: GASTROENTERITIS
  4. CALCIUM CARBONATE [Suspect]
     Dosage: 0.75 G

REACTIONS (2)
  - CHOLELITHIASIS [None]
  - GASTROENTERITIS [None]
